FAERS Safety Report 6124212-4 (Version None)
Quarter: 2009Q1

REPORT INFORMATION
  Report Type: 
  Country: None (occurrence: None)
  Receive Date: 20090319
  Receipt Date: 20090310
  Transmission Date: 20090719
  Serious: Yes (Life-Threatening, Hospitalization)
  Sender: FDA-Public Use
  Company Number: BE-ELI_LILLY_AND_COMPANY-BE200903000872

PATIENT
  Sex: Male
  Weight: 29.5 kg

DRUGS (2)
  1. STRATTERA [Suspect]
     Indication: ATTENTION DEFICIT/HYPERACTIVITY DISORDER
     Dosage: 40 MG, DAILY (1/D)
     Route: 048
     Dates: start: 20080406
  2. CLARITHROMYCIN [Concomitant]
     Indication: LARYNGITIS
     Dosage: UNK, UNKNOWN
     Route: 048
     Dates: start: 20090130, end: 20090203

REACTIONS (2)
  - DYSPNOEA [None]
  - EPIGLOTTITIS [None]
